FAERS Safety Report 6158966-8 (Version None)
Quarter: 2009Q2

REPORT INFORMATION
  Report Type: 
  Country: None (occurrence: None)
  Receive Date: 20090417
  Receipt Date: 20090407
  Transmission Date: 20091009
  Serious: Yes (Death, Other)
  Sender: FDA-Public Use
  Company Number: FR-PFIZER INC-2009194308

PATIENT

DRUGS (1)
  1. VFEND [Suspect]
     Indication: ASPERGILLOSIS

REACTIONS (2)
  - DEATH [None]
  - HYPOGLYCAEMIA [None]
